FAERS Safety Report 24687174 (Version 1)
Quarter: 2024Q4

REPORT INFORMATION
  Report Type: Report from Study
  Country: US (occurrence: US)
  Receive Date: 20241202
  Receipt Date: 20241202
  Transmission Date: 20250115
  Serious: Yes (Other)
  Sender: BAYER HEALTHCARE PHARMACEUTICALS INC.
  Company Number: US-BAYER-2024A098741

PATIENT
  Age: 43 Year
  Sex: Male
  Weight: 105.67 kg

DRUGS (14)
  1. ADEMPAS [Suspect]
     Active Substance: RIOCIGUAT
     Indication: Pulmonary arterial hypertension
     Dosage: UNK
     Route: 048
     Dates: start: 20240705
  2. ADEMPAS [Suspect]
     Active Substance: RIOCIGUAT
     Indication: Pulmonary arterial hypertension
     Dosage: 1.5 MG, TID
     Route: 048
  3. ADEMPAS [Suspect]
     Active Substance: RIOCIGUAT
     Indication: Pulmonary arterial hypertension
     Dosage: 2 MG, TID
     Route: 048
  4. ADEMPAS [Suspect]
     Active Substance: RIOCIGUAT
     Indication: Pulmonary arterial hypertension
     Dosage: 2.5 MG, TID
     Route: 048
  5. MELATONIN [Concomitant]
     Active Substance: MELATONIN
  6. SUBOXONE [Concomitant]
     Active Substance: BUPRENORPHINE HYDROCHLORIDE\NALOXONE HYDROCHLORIDE
  7. TYLENOL [Concomitant]
     Active Substance: ACETAMINOPHEN
  8. TRAZODONE HCL [Concomitant]
     Active Substance: TRAZODONE HYDROCHLORIDE
  9. THIAMINE HYDROCHLORIDE [Concomitant]
     Active Substance: THIAMINE HYDROCHLORIDE
  10. MAGNESIUM OXIDE [Concomitant]
     Active Substance: MAGNESIUM OXIDE
  11. ELIQUIS [Concomitant]
     Active Substance: APIXABAN
  12. CALCIUM CARBONATE [Concomitant]
     Active Substance: CALCIUM CARBONATE
  13. DIGOXIN [Concomitant]
     Active Substance: DIGOXIN
  14. SENNA [Concomitant]
     Active Substance: SENNA LEAF\SENNOSIDES\SENNOSIDES A AND B

REACTIONS (19)
  - Oxygen saturation decreased [Recovered/Resolved]
  - Pulmonary thrombosis [None]
  - Right ventricular failure [Recovered/Resolved]
  - Blood pressure decreased [Recovered/Resolved]
  - Lung disorder [None]
  - Oedema peripheral [Recovering/Resolving]
  - Dyspepsia [Recovered/Resolved]
  - Headache [Recovered/Resolved]
  - Fluid retention [Not Recovered/Not Resolved]
  - Cardiac hypertrophy [Recovered/Resolved]
  - Weight increased [None]
  - Hypertension [Recovering/Resolving]
  - Weight fluctuation [None]
  - Oedema [None]
  - Wrong technique in product usage process [None]
  - Nasopharyngitis [None]
  - Productive cough [Not Recovered/Not Resolved]
  - Epistaxis [None]
  - Headache [None]

NARRATIVE: CASE EVENT DATE: 20240701
